FAERS Safety Report 5284934-4 (Version None)
Quarter: 2007Q2

REPORT INFORMATION
  Report Type: 
  Country: None (occurrence: None)
  Receive Date: 20070403
  Receipt Date: 20070328
  Transmission Date: 20071010
  Serious: Yes (Life-Threatening)
  Sender: FDA-Public Use
  Company Number: 2007AP01851

PATIENT
  Age: 75 Year
  Sex: Male

DRUGS (6)
  1. OMEPRAL [Suspect]
     Indication: REFLUX OESOPHAGITIS
     Route: 048
     Dates: end: 20070303
  2. KREMEZIN [Concomitant]
     Route: 048
     Dates: end: 20070303
  3. ALLOPURINOL [Concomitant]
     Route: 048
     Dates: end: 20070303
  4. HALFDIGOXIN [Concomitant]
     Route: 048
     Dates: end: 20070303
  5. LASIX [Concomitant]
     Route: 048
     Dates: end: 20070303
  6. WARFARIN SODIUM [Concomitant]
     Route: 048
     Dates: end: 20070303

REACTIONS (1)
  - GASTRIC ULCER HAEMORRHAGE [None]
